FAERS Safety Report 9717013 (Version 2)
Quarter: 2015Q3

REPORT INFORMATION
  Report Type: Spontaneous
  Country: US (occurrence: US)
  Receive Date: 20131127
  Receipt Date: 20150804
  Transmission Date: 20151125
  Serious: No
  Sender: FDA-Public Use
  Company Number: US-GILEAD-2009-0020670

PATIENT
  Age: 63 Year
  Sex: Female
  Weight: 104.78 kg

DRUGS (13)
  1. NEXIUM [Concomitant]
     Active Substance: ESOMEPRAZOLE MAGNESIUM
  2. FISH OIL [Concomitant]
     Active Substance: FISH OIL
  3. GLUCOPHAGE [Concomitant]
     Active Substance: METFORMIN HYDROCHLORIDE
  4. VITAMIN E [Concomitant]
     Active Substance: .ALPHA.-TOCOPHEROL
  5. PRINIVIL [Concomitant]
     Active Substance: LISINOPRIL
  6. LETAIRIS [Suspect]
     Active Substance: AMBRISENTAN
     Indication: PULMONARY ARTERIAL HYPERTENSION
     Route: 048
     Dates: start: 20090112
  7. ASPIRIN. [Concomitant]
     Active Substance: ASPIRIN
  8. LASIX [Concomitant]
     Active Substance: FUROSEMIDE
  9. AMARYL [Concomitant]
     Active Substance: GLIMEPIRIDE
  10. VITAMIN B [Concomitant]
     Active Substance: VITAMIN B
  11. NOVOLIN [Concomitant]
     Active Substance: INSULIN HUMAN
  12. NEURONTIN [Concomitant]
     Active Substance: GABAPENTIN
  13. RESTORIL [Concomitant]
     Active Substance: TEMAZEPAM

REACTIONS (1)
  - Fatigue [Unknown]
